FAERS Safety Report 6088085-0 (Version None)
Quarter: 2009Q1

REPORT INFORMATION
  Report Type: 
  Country: None (occurrence: None)
  Receive Date: 20090218
  Receipt Date: 20090204
  Transmission Date: 20090719
  Serious: Yes (Other)
  Sender: FDA-Public Use
  Company Number: DSA_32927_2008

PATIENT
  Sex: Female
  Weight: 2 kg

DRUGS (4)
  1. LORAZEPAM [Suspect]
     Indication: SCHIZOPHRENIA
     Dosage: (1 MG TID TRANSPLACENTAL)
     Route: 064
  2. AKINETON [Suspect]
     Indication: SCHIZOPHRENIA
     Dosage: (1 MG TID ORAL)
     Route: 048
  3. FLUPHENAZINE [Suspect]
     Indication: SCHIZOPHRENIA
     Dosage: (1 MG TID ORAL)
     Route: 048
  4. INSULIN [Concomitant]

REACTIONS (6)
  - APGAR SCORE ABNORMAL [None]
  - CAESAREAN SECTION [None]
  - DRUG WITHDRAWAL SYNDROME NEONATAL [None]
  - INFANTILE APNOEIC ATTACK [None]
  - MATERNAL DRUGS AFFECTING FOETUS [None]
  - NEONATAL ASPHYXIA [None]
